FAERS Safety Report 4873115-1 (Version None)
Quarter: 2006Q1

REPORT INFORMATION
  Report Type: 
  Country: None (occurrence: None)
  Receive Date: 20060105
  Receipt Date: 20060102
  Transmission Date: 20060701
  Serious: Yes (Hospitalization)
  Sender: FDA-Public Use
  Company Number: 2006SE00034

PATIENT
  Age: 58 Year
  Sex: Male

DRUGS (3)
  1. BLOPRESS TABLETS 8 [Suspect]
     Indication: HYPERTENSION
     Route: 048
     Dates: start: 20051209, end: 20051212
  2. NORVASC [Suspect]
     Indication: HYPERTENSION
     Route: 048
     Dates: start: 20051209, end: 20051212
  3. NORVASC [Suspect]
     Route: 048
     Dates: start: 20051213

REACTIONS (1)
  - LOSS OF CONSCIOUSNESS [None]
